FAERS Safety Report 7356328-9 (Version None)
Quarter: 2011Q1

REPORT INFORMATION
  Report Type: 
  Country: None (occurrence: None)
  Receive Date: 20110316
  Receipt Date: 20110303
  Transmission Date: 20110831
  Serious: Yes (Other)
  Sender: FDA-Public Use
  Company Number: US-ROCHE-759357

PATIENT
  Sex: Female
  Weight: 67.1 kg

DRUGS (17)
  1. KLONOPIN [Suspect]
     Indication: ANXIETY
     Dosage: ROUTE: ORAL
     Route: 048
  2. KLONOPIN [Suspect]
     Route: 048
     Dates: start: 20101101
  3. VITAMIN D [Suspect]
     Dosage: CALCEFEROL (VITAMIN D) STRENGTH: 50,000 UNITS
     Route: 065
     Dates: start: 20101101
  4. CYMBALTA [Suspect]
     Indication: DEPRESSION
     Dosage: ROUTE: ORAL, LOT: 1 WEEK
     Route: 048
     Dates: start: 20101101, end: 20101101
  5. TRAZODONE [Concomitant]
  6. LEVOTHYROXINE [Concomitant]
  7. PREVACID [Concomitant]
  8. CYMBALTA [Suspect]
     Dosage: ROUTE: ORAL
     Route: 048
     Dates: end: 20101101
  9. LYRICA [Suspect]
     Route: 048
  10. FENTANYL-100 [Suspect]
     Indication: BACK PAIN
     Dosage: FENTANYL-50 FOR PAIN
     Route: 062
     Dates: start: 20080101, end: 20091201
  11. FENTANYL-100 [Suspect]
     Dosage: FENTANYL 75; LOT NUMBER: 275867A; EXIPIRATION DATE: FERBURAY 2012
     Route: 062
     Dates: start: 20100905
  12. FENTANYL-100 [Suspect]
     Dosage: FENTANYL 50 FOR PAIN
     Route: 062
     Dates: start: 20050101
  13. PERCOCET [Concomitant]
     Dates: start: 20100801
  14. FENTANYL-100 [Suspect]
     Dosage: FENTANYL -75
     Route: 062
     Dates: start: 20091201, end: 20100904
  15. ATROVENT [Suspect]
     Route: 045
     Dates: start: 20070101
  16. CYMBALTA [Suspect]
     Route: 048
     Dates: start: 20101101
  17. FENTANYL-100 [Suspect]
     Dosage: FENTANYL 50 FOR PAIN
     Route: 062
     Dates: start: 20101101

REACTIONS (69)
  - DEPRESSED LEVEL OF CONSCIOUSNESS [None]
  - MALAISE [None]
  - FALL [None]
  - FOREIGN BODY [None]
  - NIGHT SWEATS [None]
  - APPLICATION SITE URTICARIA [None]
  - GAIT DISTURBANCE [None]
  - EYELID PTOSIS [None]
  - DYSKINESIA [None]
  - LUMBAR SPINAL STENOSIS [None]
  - INCREASED TENDENCY TO BRUISE [None]
  - DIZZINESS [None]
  - LOSS OF CONSCIOUSNESS [None]
  - THOUGHT BLOCKING [None]
  - APPLICATION SITE ERYTHEMA [None]
  - MYALGIA [None]
  - ANXIETY [None]
  - DEPRESSION [None]
  - FEELING ABNORMAL [None]
  - MEMORY IMPAIRMENT [None]
  - IRRITABILITY [None]
  - ROAD TRAFFIC ACCIDENT [None]
  - CHILLS [None]
  - ASTHENIA [None]
  - COORDINATION ABNORMAL [None]
  - HYPOAESTHESIA [None]
  - NERVOUS SYSTEM DISORDER [None]
  - FLATULENCE [None]
  - MICTURITION URGENCY [None]
  - ARTHRALGIA [None]
  - APPLICATION SITE IRRITATION [None]
  - BALANCE DISORDER [None]
  - DECREASED APPETITE [None]
  - HYPERHIDROSIS [None]
  - IMPAIRED HEALING [None]
  - TEMPERATURE INTOLERANCE [None]
  - VISION BLURRED [None]
  - VERTIGO [None]
  - MUSCLE SPASMS [None]
  - HEADACHE [None]
  - CONDITION AGGRAVATED [None]
  - SKELETAL INJURY [None]
  - WEIGHT DECREASED [None]
  - DISTURBANCE IN ATTENTION [None]
  - MUSCULOSKELETAL STIFFNESS [None]
  - MUSCULAR WEAKNESS [None]
  - CHEST DISCOMFORT [None]
  - SKIN DISORDER [None]
  - BODY TEMPERATURE INCREASED [None]
  - APHASIA [None]
  - APPLICATION SITE EROSION [None]
  - OEDEMA PERIPHERAL [None]
  - PARAESTHESIA [None]
  - VISUAL IMPAIRMENT [None]
  - SLEEP DISORDER [None]
  - POLLAKIURIA [None]
  - LIBIDO DECREASED [None]
  - DYSPHORIA [None]
  - FATIGUE [None]
  - SOMNOLENCE [None]
  - MUSCLE RIGIDITY [None]
  - CONFUSIONAL STATE [None]
  - URINARY INCONTINENCE [None]
  - DIPLOPIA [None]
  - DYSPHONIA [None]
  - PRURITUS [None]
  - CONSTIPATION [None]
  - CHEST PAIN [None]
  - DRUG EFFECT INCREASED [None]
